FAERS Safety Report 18170910 (Version 1)
Quarter: 2020Q3

REPORT INFORMATION
  Report Type: Spontaneous
  Country: JP (occurrence: JP)
  Receive Date: 20200819
  Receipt Date: 20200819
  Transmission Date: 20201103
  Serious: Yes (Death)
  Sender: FDA-Public Use
  Company Number: JP-BAYER-2020-172142

PATIENT
  Age: 9 Decade
  Sex: Female

DRUGS (2)
  1. VENTAVIS [Interacting]
     Active Substance: ILOPROST
     Dates: start: 20200702
  2. ADEMPAS [Suspect]
     Active Substance: RIOCIGUAT
     Dosage: UNK
     Dates: end: 20200810

REACTIONS (3)
  - Death [Fatal]
  - Labelled drug-drug interaction medication error [None]
  - Blood pressure decreased [None]

NARRATIVE: CASE EVENT DATE: 20200702
